FAERS Safety Report 4897072-7 (Version None)
Quarter: 2005Q4

REPORT INFORMATION
  Report Type: 
  Country: None (occurrence: None)
  Receive Date: 20051228
  Receipt Date: 20050916
  Transmission Date: 20060501
  Serious: Yes (Hospitalization, Disabling, Other)
  Sender: FDA-Public Use
  Company Number: USA0509108392

PATIENT
  Age: 22 Year
  Sex: Female

DRUGS (3)
  1. NPH ILETIN I (BEEF-PORK) [Suspect]
     Indication: DIABETES MELLITUS
     Dosage: 80 U
     Dates: start: 19560101
  2. HUMULIN R [Suspect]
     Indication: DIABETES MELLITUS
  3. HUMULIN N [Suspect]
     Indication: DIABETES MELLITUS

REACTIONS (5)
  - BLINDNESS [None]
  - BLOOD GLUCOSE FLUCTUATION [None]
  - GLAUCOMA [None]
  - HYPOACUSIS [None]
  - OPTIC NERVE DISORDER [None]
